FAERS Safety Report 15739831 (Version 1)
Quarter: 2018Q4

REPORT INFORMATION
  Report Type: Spontaneous
  Country: US (occurrence: US)
  Receive Date: 20181219
  Receipt Date: 20181219
  Transmission Date: 20190205
  Serious: No
  Sender: FDA-Public Use
  Company Number: US-BAYER-2018-233692

PATIENT
  Sex: Female

DRUGS (3)
  1. NEXIUM [ESOMEPRAZOLE MAGNESIUM] [Concomitant]
  2. CLARITIN [Suspect]
     Active Substance: LORATADINE
     Dosage: 2 DF
     Route: 048
     Dates: end: 2018
  3. CHOLESTEROL [Concomitant]
     Active Substance: CHOLESTEROL

REACTIONS (1)
  - Accidental exposure to product [Recovered/Resolved]

NARRATIVE: CASE EVENT DATE: 20181213
